FAERS Safety Report 9684237 (Version 1)
Quarter: 2013Q4

REPORT INFORMATION
  Report Type: Spontaneous
  Country: US (occurrence: US)
  Receive Date: 20131112
  Receipt Date: 20131112
  Transmission Date: 20140711
  Serious: Yes (Hospitalization)
  Sender: FDA-Public Use
  Company Number: US-GLAXOSMITHKLINE-A1049287A

PATIENT
  Age: 38 Year
  Sex: Female

DRUGS (1)
  1. BACTROBAN [Suspect]
     Indication: SKIN ULCER
     Route: 061
     Dates: start: 20130227

REACTIONS (1)
  - Investigation [Unknown]
